FAERS Safety Report 5049959-2 (Version None)
Quarter: 2006Q3

REPORT INFORMATION
  Report Type: 
  Country: None (occurrence: None)
  Receive Date: 20060707
  Receipt Date: 20060626
  Transmission Date: 20061208
  Serious: Yes (Other)
  Sender: FDA-Public Use
  Company Number: 2006US-02719

PATIENT
  Age: 24 Year
  Sex: Female

DRUGS (2)
  1. ISOTRETINOIN [Suspect]
  2. FOLATE SUPPLEMENT [Concomitant]

REACTIONS (20)
  - ABDOMINAL PAIN UPPER [None]
  - ANAEMIA [None]
  - ANAL ULCER [None]
  - BLOOD BILIRUBIN INCREASED [None]
  - CAROTENE DECREASED [None]
  - COLITIS [None]
  - DIARRHOEA [None]
  - DIZZINESS [None]
  - DRUG TOXICITY [None]
  - FATIGUE [None]
  - FOLATE DEFICIENCY [None]
  - LIP EROSION [None]
  - MALAISE [None]
  - NEUTROPENIA [None]
  - PALLOR [None]
  - SCAB [None]
  - STOMATITIS [None]
  - VITAMIN B12 DEFICIENCY [None]
  - VOMITING [None]
  - WHITE BLOOD CELL COUNT DECREASED [None]
